FAERS Safety Report 9300812 (Version 1)
Quarter: 2013Q2

REPORT INFORMATION
  Report Type: Spontaneous
  Country: US (occurrence: US)
  Receive Date: 20130521
  Receipt Date: 20130521
  Transmission Date: 20140414
  Serious: Yes (Other)
  Sender: FDA-Public Use
  Company Number: CHPA2013US008359

PATIENT
  Age: 51 Year
  Sex: Male

DRUGS (3)
  1. BUCKLEY^S COUGH MIXTURE [Suspect]
     Indication: NASOPHARYNGITIS
     Dosage: 1 TSP, ACCORDING TO LABEL
     Route: 048
  2. BUCKLEY^S CHEST CONGESTION [Suspect]
     Indication: NASOPHARYNGITIS
     Dosage: UNK, ACCORDING TO LABEL
     Route: 048
  3. COMBIVENT [Concomitant]
     Indication: CHRONIC OBSTRUCTIVE PULMONARY DISEASE
     Dosage: 2 DF, QD

REACTIONS (7)
  - Inguinal hernia [Recovered/Resolved]
  - Hernia pain [Recovered/Resolved]
  - Pulmonary bulla [Unknown]
  - Productive cough [Not Recovered/Not Resolved]
  - Nasopharyngitis [Not Recovered/Not Resolved]
  - Dyspnoea [Not Recovered/Not Resolved]
  - Rhinorrhoea [Not Recovered/Not Resolved]
